FAERS Safety Report 4854616-9 (Version None)
Quarter: 2005Q4

REPORT INFORMATION
  Report Type: 
  Country: None (occurrence: None)
  Receive Date: 20051213
  Receipt Date: 20051201
  Transmission Date: 20060501
  Serious: Yes (Hospitalization, Other)
  Sender: FDA-Public Use
  Company Number: HQWYE028719AUG05

PATIENT
  Age: 32 Year
  Sex: Male

DRUGS (1)
  1. RAPAMUNE [Suspect]
     Indication: PROPHYLAXIS AGAINST TRANSPLANT REJECTION
     Dosage: 3 MG 1X PER 1 DAY
     Route: 048
     Dates: start: 20030129, end: 20050819

REACTIONS (2)
  - COLITIS [None]
  - DIARRHOEA HAEMORRHAGIC [None]
